FAERS Safety Report 7236057-2 (Version None)
Quarter: 2011Q1

REPORT INFORMATION
  Report Type: 
  Country: None (occurrence: None)
  Receive Date: 20110111
  Receipt Date: 20101229
  Transmission Date: 20110831
  Serious: Yes (Other)
  Sender: FDA-Public Use
  Company Number: 1000018074

PATIENT
  Sex: Female

DRUGS (2)
  1. ANTIPSYCHOTICS (ANTIPSYCHOTICS) (INJECTION) [Suspect]
     Dosage: INTRAMUSCULAR
     Route: 030
  2. CITALOPRAM HYDROBROMIDE [Suspect]
     Dosage: 40 MG (40 MG, 1 IN 1 D), ORAL
     Route: 048

REACTIONS (2)
  - MUSCLE RIGIDITY [None]
  - DYSTONIA [None]
